FAERS Safety Report 8614659 (Version 3)
Quarter: 2014Q1

REPORT INFORMATION
  Report Type: Report from Study
  Country: US (occurrence: US)
  Receive Date: 20120614
  Receipt Date: 20140220
  Transmission Date: 20141002
  Serious: Yes (Other)
  Sender: FDA-Public Use
  Company Number: US-ROCHE-1076797

PATIENT
  Sex: 0

DRUGS (1)
  1. RANIBIZUMAB [Suspect]
     Indication: MACULAR OEDEMA
     Route: 050

REACTIONS (1)
  - Haemorrhagic stroke [Unknown]
